FAERS Safety Report 10489273 (Version 1)
Quarter: 2014Q4

REPORT INFORMATION
  Report Type: Spontaneous
  Country: IE (occurrence: IE)
  Receive Date: 20141002
  Receipt Date: 20141002
  Transmission Date: 20150528
  Serious: Yes (Other)
  Sender: FDA-Public Use
  Company Number: IE-TEVA-447177ISR

PATIENT
  Age: 69 Year
  Sex: Male

DRUGS (6)
  1. LIPITOR [Concomitant]
     Active Substance: ATORVASTATIN CALCIUM
  2. SINEMET 1.5 [Concomitant]
     Dosage: 400 MILLIGRAM DAILY;
  3. ASPIRIN. [Concomitant]
     Active Substance: ASPIRIN
  4. RISONATE [Suspect]
     Active Substance: RISEDRONIC ACID
     Indication: FRACTURE
     Dates: start: 20131114
  5. AZILECT [Concomitant]
     Active Substance: RASAGILINE MESYLATE
  6. AVODART [Concomitant]
     Active Substance: DUTASTERIDE

REACTIONS (5)
  - Somnolence [Not Recovered/Not Resolved]
  - Dysuria [Not Recovered/Not Resolved]
  - Restlessness [Not Recovered/Not Resolved]
  - Delirium [Not Recovered/Not Resolved]
  - Speech disorder [Not Recovered/Not Resolved]

NARRATIVE: CASE EVENT DATE: 20131114
